FAERS Safety Report 7643691-4 (Version None)
Quarter: 2011Q3

REPORT INFORMATION
  Report Type: 
  Country: None (occurrence: None)
  Receive Date: 20110729
  Receipt Date: 20110718
  Transmission Date: 20111222
  Serious: Yes (Other)
  Sender: FDA-Public Use
  Company Number: PHHY2011US58942

PATIENT
  Sex: Female

DRUGS (6)
  1. SIMVASTATIN [Concomitant]
  2. AMLODIPINE BESYLATE [Concomitant]
  3. ATENOLOL [Concomitant]
  4. TASIGNA [Suspect]
     Indication: CHRONIC MYELOID LEUKAEMIA
     Dosage: 400 MG, BID
     Route: 048
     Dates: start: 20110503
  5. ASPIRIN [Concomitant]
  6. HYDROXYBUTYLOXIDE [Concomitant]

REACTIONS (2)
  - ELECTROCARDIOGRAM QT PROLONGED [None]
  - FATIGUE [None]
